FAERS Safety Report 5994594-2 (Version None)
Quarter: 2008Q4

REPORT INFORMATION
  Report Type: 
  Country: None (occurrence: None)
  Receive Date: 20081212
  Receipt Date: 20081024
  Transmission Date: 20090506
  Serious: No
  Sender: FDA-Public Use
  Company Number: US-ABBOTT-08P-163-0475430-00

PATIENT
  Sex: Female
  Weight: 90.8 kg

DRUGS (5)
  1. HUMIRA [Suspect]
     Indication: RHEUMATOID ARTHRITIS
     Route: 058
     Dates: start: 20080701, end: 20080905
  2. SERETIDE [Concomitant]
     Indication: ASTHMA
  3. HYDROCODONE BITARTRATE [Concomitant]
     Indication: PAIN
  4. TELMISARTAN [Concomitant]
     Indication: HYPERTENSION
     Dosage: 80 MG, DAILY
  5. UNKNOWN MEDICATION [Concomitant]
     Indication: IRRITABLE BOWEL SYNDROME

REACTIONS (4)
  - FUNGAL INFECTION [None]
  - MENORRHAGIA [None]
  - URINARY TRACT INFECTION [None]
  - VAGINAL HAEMORRHAGE [None]
